FAERS Safety Report 4355885-4 (Version None)
Quarter: 2004Q2

REPORT INFORMATION
  Report Type: 
  Country: None (occurrence: None)
  Receive Date: 20040505
  Receipt Date: 20040426
  Transmission Date: 20050107
  Serious: Yes (Hospitalization)
  Sender: FDA-Public Use
  Company Number: FR-JNJFOC-20040405284

PATIENT
  Age: 41 Year
  Sex: Female

DRUGS (5)
  1. ACETAMINOPHEN AND TRAMADOL HCL [Suspect]
     Indication: SUICIDE ATTEMPT
     Dosage: 5 DOSE(S), ORAL
     Route: 048
     Dates: start: 20040206, end: 20040206
  2. ACETAMINOPHEN [Suspect]
     Dosage: 30 DOSE (S), 1 IN 1 DAY, ORAL
     Route: 048
     Dates: start: 20040206, end: 20040206
  3. PROPOFAN (PROPOFAN) [Suspect]
     Dosage: 10 DOSE(S), 1 IN 1 DAY, ORAL
     Route: 048
     Dates: start: 20040206, end: 20040206
  4. DIOVENOR (DIOSMIN) [Suspect]
     Dosage: 30 DISE(S), 1 IN 1 DAY, ORAL
     Route: 048
     Dates: end: 20040206
  5. ORGAMETRIL (LYNESTRENOL) [Suspect]
     Dosage: 30 DOSE(S), 1 IN 1 DAY, ORAL
     Route: 048
     Dates: start: 20040206, end: 20040206

REACTIONS (20)
  - ACIDOSIS [None]
  - BLOOD ALCOHOL INCREASED [None]
  - BLOOD BICARBONATE DECREASED [None]
  - BLOOD BILIRUBIN INCREASED [None]
  - COMA [None]
  - CONVULSION [None]
  - DRUG INTERACTION [None]
  - HYPOKALAEMIA [None]
  - HYPOTONIA [None]
  - INTENTIONAL OVERDOSE [None]
  - MIOSIS [None]
  - MULTIPLE DRUG OVERDOSE [None]
  - MYDRIASIS [None]
  - NAUSEA [None]
  - PCO2 DECREASED [None]
  - PROTHROMBIN TIME ABNORMAL [None]
  - SOMNOLENCE [None]
  - SUICIDE ATTEMPT [None]
  - TACHYCARDIA [None]
  - VOMITING [None]
